FAERS Safety Report 8018760-X (Version None)
Quarter: 2012Q1

REPORT INFORMATION
  Report Type: 
  Country: None (occurrence: None)
  Receive Date: 20120103
  Receipt Date: 20120103
  Transmission Date: 20120608
  Serious: Yes (Life-Threatening, Hospitalization)
  Sender: FDA-Public Use
  Company Number: None

PATIENT
  Age: 63 Year
  Sex: Female
  Weight: 56.699 kg

DRUGS (1)
  1. LAMOTRIGINE [Suspect]
     Indication: BIPOLAR DISORDER
     Dosage: 25 MG, 1-4/DAY AS TOLERATED
     Route: 048
     Dates: start: 20110408, end: 20110416

REACTIONS (17)
  - OXYGEN SATURATION DECREASED [None]
  - CHILLS [None]
  - DEHYDRATION [None]
  - DRUG DISPENSING ERROR [None]
  - OEDEMA PERIPHERAL [None]
  - ALOPECIA [None]
  - INFLUENZA LIKE ILLNESS [None]
  - RASH [None]
  - RESPIRATORY RATE DECREASED [None]
  - RENAL IMPAIRMENT [None]
  - POST-TRAUMATIC STRESS DISORDER [None]
  - IMPAIRED WORK ABILITY [None]
  - DRUG ADMINISTRATION ERROR [None]
  - PYREXIA [None]
  - SKIN EXFOLIATION [None]
  - DRUG PRESCRIBING ERROR [None]
  - HYPOTENSION [None]
